FAERS Safety Report 8062954-4 (Version None)
Quarter: 2012Q1

REPORT INFORMATION
  Report Type: 
  Country: None (occurrence: None)
  Receive Date: 20120123
  Receipt Date: 20120123
  Transmission Date: 20120608
  Serious: No
  Sender: FDA-Public Use
  Company Number: None

PATIENT
  Age: 40 Year
  Sex: Female
  Weight: 70.306 kg

DRUGS (1)
  1. E-LIQUID [Suspect]
     Indication: SMOKING CESSATION THERAPY
     Dates: start: 20120109, end: 20120119

REACTIONS (2)
  - DYSPNOEA [None]
  - ABDOMINAL DISTENSION [None]
